FAERS Safety Report 14155563 (Version 1)
Quarter: 2017Q4

REPORT INFORMATION
  Report Type: Spontaneous
  Country: US (occurrence: US)
  Receive Date: 20171103
  Receipt Date: 20171103
  Transmission Date: 20180321
  Serious: No
  Sender: FDA-Public Use
  Company Number: PHEH2017US035158

PATIENT
  Sex: Female

DRUGS (1)
  1. AFINITOR [Suspect]
     Active Substance: EVEROLIMUS
     Indication: BREAST CANCER FEMALE
     Route: 065

REACTIONS (5)
  - Hot flush [Unknown]
  - White blood cell count decreased [Unknown]
  - Epistaxis [Unknown]
  - Anxiety [Unknown]
  - Headache [Unknown]
